FAERS Safety Report 6928210-X (Version None)
Quarter: 2010Q3

REPORT INFORMATION
  Report Type: 
  Country: None (occurrence: None)
  Receive Date: 20100817
  Receipt Date: 20100813
  Transmission Date: 20110219
  Serious: Yes (Hospitalization)
  Sender: FDA-Public Use
  Company Number: NL-ROCHE-711108

PATIENT
  Sex: Male
  Weight: 100 kg

DRUGS (5)
  1. TOCILIZUMAB [Suspect]
     Indication: RHEUMATOID ARTHRITIS
     Dosage: LAST DOSE PRIOR TO EVENT: 26 APRIL 2010, FORM: INFUSION
     Route: 042
     Dates: start: 20090622
  2. TOCILIZUMAB [Suspect]
     Dosage: RECEIVED DOSE IN MA21573, FORM: INFUSION
     Route: 042
     Dates: end: 20090622
  3. HYDROCHLOROTHIAZIDE [Concomitant]
     Dates: start: 20090817
  4. ENALAPRIL [Concomitant]
     Dates: start: 20091012
  5. PREDNISONE [Concomitant]
     Dates: start: 20100118

REACTIONS (1)
  - CEREBRAL INFARCTION [None]
